FAERS Safety Report 12848440 (Version 1)
Quarter: 2016Q4

REPORT INFORMATION
  Report Type: Report from Study
  Country: None (occurrence: CO)
  Receive Date: 20161014
  Receipt Date: 20161014
  Transmission Date: 20170207
  Serious: Yes (Death)
  Sender: FDA-Public Use
  Company Number: CO-ABBVIE-16P-036-1752119-00

PATIENT
  Age: 77 Year
  Sex: Female

DRUGS (1)
  1. ZEMPLAR [Suspect]
     Active Substance: PARICALCITOL
     Indication: HYPERPARATHYROIDISM SECONDARY
     Dosage: POST DIALYSIS
     Route: 042
     Dates: start: 20160209, end: 20160505

REACTIONS (7)
  - Cerebrovascular accident [Fatal]
  - Intervertebral discitis [Fatal]
  - Pain in extremity [Fatal]
  - Pyrexia [Fatal]
  - Device related infection [Fatal]
  - Vomiting [Fatal]
  - Respiratory failure [Fatal]

NARRATIVE: CASE EVENT DATE: 20160912
